FAERS Safety Report 10083766 (Version 2)
Quarter: 2014Q2

REPORT INFORMATION
  Report Type: Spontaneous
  Country: US (occurrence: US)
  Receive Date: 20140417
  Receipt Date: 20140512
  Transmission Date: 20141212
  Serious: Yes (Other)
  Sender: FDA-Public Use
  Company Number: US-BAYER-2014-056003

PATIENT
  Age: 40 Year
  Sex: Female

DRUGS (2)
  1. YASMIN [Suspect]
  2. IBUPROFEN [Concomitant]
     Dosage: UNK
     Dates: start: 20051112

REACTIONS (2)
  - Deep vein thrombosis [None]
  - Pulmonary embolism [None]
